FAERS Safety Report 6879836-3 (Version None)
Quarter: 2010Q3

REPORT INFORMATION
  Report Type: 
  Country: None (occurrence: None)
  Receive Date: 20100728
  Receipt Date: 20100715
  Transmission Date: 20110219
  Serious: Yes (Other)
  Sender: FDA-Public Use
  Company Number: US-TEVA-217863USA

PATIENT
  Sex: Male
  Weight: 81.72 kg

DRUGS (18)
  1. TRAZODONE HCL [Suspect]
     Indication: INSOMNIA
     Dosage: 150 MG, PO QHS
     Dates: start: 20040318
  2. TRAZODONE HCL [Suspect]
     Indication: ANXIETY
  3. TEMAZEPAM [Suspect]
     Indication: INSOMNIA
     Dosage: 30 MG, QHS PRN
     Route: 048
     Dates: start: 20040303, end: 20040817
  4. TEMAZEPAM [Suspect]
     Indication: ANXIETY
  5. TRAZODONE HCL [Suspect]
     Indication: INSOMNIA
     Dosage: 150 MG QPM
     Dates: start: 20040226, end: 20040401
  6. TEMAZEPAM [Suspect]
     Indication: INSOMNIA
     Dosage: 30 MG, QHS PRN
     Dates: start: 20040315
  7. TEMAZEPAM [Suspect]
     Dosage: 15 MG, QHS
     Dates: start: 20040324
  8. TEMAZEPAM [Suspect]
     Dosage: 30 MG, QHS PRN
     Dates: start: 20040303
  9. TEMAZEPAM [Suspect]
     Dosage: 15 MG, QHS PRN
     Dates: start: 20040709
  10. TEMAZEPAM [Suspect]
     Dosage: 15 MG, QHS PRN
     Dates: start: 20040817
  11. TRAZODONE HYDROCHLORIDE [Suspect]
     Indication: INSOMNIA
     Dosage: 50 MG TO 100 MG QHS PRN
     Route: 048
     Dates: start: 20040226
  12. ZOLPIDEM TARTRATE [Concomitant]
     Dates: start: 20040212, end: 20040301
  13. ZOLPIDEM TARTRATE [Concomitant]
     Dates: start: 20040212
  14. ESCITALOPRAM OXALATE [Concomitant]
     Dates: start: 20040709
  15. NAPROXEN [Concomitant]
     Dates: start: 20041120
  16. HYDROCODONE BITARTRATE AND ACETAMINOPHEN [Concomitant]
     Dates: start: 20041121
  17. DIPHENHYDRAMINE HYDROCHLORIDE [Concomitant]
     Indication: INSOMNIA
  18. CITALOPRAM HYDROBROMIDE [Concomitant]
     Dates: start: 20040730

REACTIONS (9)
  - AMNESIA [None]
  - ANXIETY [None]
  - DRUG EFFECT DECREASED [None]
  - ERECTILE DYSFUNCTION [None]
  - IMPRISONMENT [None]
  - MEMORY IMPAIRMENT [None]
  - PALPITATIONS [None]
  - SEXUAL ABUSE [None]
  - TACHYCARDIA [None]
